FAERS Safety Report 9799683 (Version 1)
Quarter: 2014Q1

REPORT INFORMATION
  Report Type: Spontaneous
  Country: US (occurrence: US)
  Receive Date: 20140106
  Receipt Date: 20140106
  Transmission Date: 20141002
  Serious: No
  Sender: FDA-Public Use
  Company Number: US-GILEAD-2010-0032801

PATIENT
  Age: 89 Year
  Sex: Female

DRUGS (9)
  1. LETAIRIS [Suspect]
     Indication: PULMONARY ARTERIAL HYPERTENSION
     Route: 048
     Dates: start: 20101013
  2. REVATIO [Concomitant]
  3. AMLODIPINE [Concomitant]
  4. BENICAR [Concomitant]
  5. ATENOLOL [Concomitant]
  6. LASIX [Concomitant]
  7. ASPIRIN [Concomitant]
  8. PREMARIN [Concomitant]
  9. MULTIVITAMIN [Concomitant]

REACTIONS (3)
  - Dyspnoea [Unknown]
  - Palpitations [Unknown]
  - Flushing [Unknown]
